FAERS Safety Report 5214667-1 (Version None)
Quarter: 2007Q1

REPORT INFORMATION
  Report Type: 
  Country: None (occurrence: None)
  Receive Date: 20070122
  Receipt Date: 20061201
  Transmission Date: 20070707
  Serious: No
  Sender: FDA-Public Use
  Company Number: SE-ELI_LILLY_AND_COMPANY-SE200608006776

PATIENT
  Age: 30 Year
  Sex: Female

DRUGS (4)
  1. PROPAVAN [Concomitant]
     Indication: SLEEP DISORDER
     Dosage: 1-2 TABLETS, DAILY (1/D)
  2. PANODIL [Concomitant]
     Indication: PAIN
     Dosage: 5 TABLETS, DAILY (1/D)
  3. PARAFLEX [Concomitant]
     Dosage: 0-4 TABLETS DAILY
  4. CYMBALTA [Suspect]
     Indication: DEPRESSION
     Dosage: 90 MG, DAILY (1/D)
     Route: 065
     Dates: start: 20051017

REACTIONS (2)
  - ABORTION SPONTANEOUS [None]
  - DRUG EXPOSURE DURING PREGNANCY [None]
